FAERS Safety Report 18306379 (Version 3)
Quarter: 2021Q2

REPORT INFORMATION
  Report Type: Other
  Country: DE (occurrence: DE)
  Receive Date: 20200923
  Receipt Date: 20210517
  Transmission Date: 20210717
  Serious: Yes (Other)
  Sender: FDA-Public Use
  Company Number: DE-ROCHE-2177964

PATIENT
  Age: 56 Year
  Sex: Female

DRUGS (13)
  1. VALDOXAN [Concomitant]
     Active Substance: AGOMELATINE
  2. URBASON [Concomitant]
     Active Substance: METHYLPREDNISOLONE
     Indication: PREMEDICATION
  3. OCREVUS [Suspect]
     Active Substance: OCRELIZUMAB
     Dosage: NEXT DOE RECEIVED ON 28/FEB/2020
     Route: 042
     Dates: start: 20190212
  4. OCREVUS [Suspect]
     Active Substance: OCRELIZUMAB
     Route: 042
     Dates: start: 20200919
  5. VITAMIN D3 [Concomitant]
     Active Substance: CHOLECALCIFEROL
  6. DULOXETINE. [Concomitant]
     Active Substance: DULOXETINE
  7. PRAMIPEXOL [Concomitant]
     Active Substance: PRAMIPEXOLE
  8. OCREVUS [Suspect]
     Active Substance: OCRELIZUMAB
     Indication: PRIMARY PROGRESSIVE MULTIPLE SCLEROSIS
     Route: 042
     Dates: start: 20180213
  9. TIZANIDIN [Concomitant]
     Active Substance: TIZANIDINE HYDROCHLORIDE
  10. FAMPYRA [Concomitant]
     Active Substance: DALFAMPRIDINE
  11. VENLAFAXIN [Concomitant]
     Active Substance: VENLAFAXINE HYDROCHLORIDE
  12. OCREVUS [Suspect]
     Active Substance: OCRELIZUMAB
     Dosage: 3RD INFUSION
     Route: 042
     Dates: start: 20180814
  13. FENISTIL [Concomitant]
     Active Substance: DIMETHINDENE
     Indication: PREMEDICATION

REACTIONS (9)
  - Fatigue [Recovered/Resolved]
  - Rash [Recovered/Resolved]
  - Onychomadesis [Not Recovered/Not Resolved]
  - Psoriatic arthropathy [Not Recovered/Not Resolved]
  - Eye irritation [Recovered/Resolved]
  - Onychomycosis [Not Recovered/Not Resolved]
  - Sinusitis [Recovered/Resolved]
  - Nasopharyngitis [Recovered/Resolved]
  - Body temperature increased [Recovered/Resolved]

NARRATIVE: CASE EVENT DATE: 20180814
